FAERS Safety Report 17255266 (Version 1)
Quarter: 2020Q1

REPORT INFORMATION
  Report Type: Spontaneous
  Country: GB (occurrence: GB)
  Receive Date: 20200110
  Receipt Date: 20200110
  Transmission Date: 20200409
  Serious: Yes (Other)
  Sender: FDA-Public Use
  Company Number: GB-ACCORD-168604

PATIENT
  Age: 37 Year
  Sex: Female
  Weight: 56 kg

DRUGS (12)
  1. LACTULOSE. [Concomitant]
     Active Substance: LACTULOSE
     Indication: CONSTIPATION
     Dosage: TAKE 10-15ML TWICE A DAY.
     Dates: start: 20191212
  2. PREGABALIN. [Concomitant]
     Active Substance: PREGABALIN
     Dates: start: 20190906
  3. BACLOFEN. [Concomitant]
     Active Substance: BACLOFEN
     Dates: start: 20191024, end: 20191107
  4. PHYSEPTONE [Concomitant]
     Dosage: SUPERVISED.
     Dates: start: 20190717
  5. TRAZODONE [Suspect]
     Active Substance: TRAZODONE HYDROCHLORIDE
     Indication: DEPRESSED MOOD
     Dosage: AT NIGHT.
     Dates: start: 20191121
  6. IBUPROFEN. [Concomitant]
     Active Substance: IBUPROFEN
     Dosage: AFTER FOOD.
     Dates: start: 20191101, end: 20191129
  7. FOLIC ACID. [Concomitant]
     Active Substance: FOLIC ACID
     Dates: start: 20190906
  8. AMITRIPTYLINE [Concomitant]
     Active Substance: AMITRIPTYLINE
     Dosage: EACH NIGHT.
     Dates: start: 20190906
  9. CEFALEXIN [Concomitant]
     Active Substance: CEPHALEXIN
     Dates: start: 20191024, end: 20191031
  10. IRON [Concomitant]
     Active Substance: IRON
     Dates: start: 20190906
  11. RIVAROXABAN [Concomitant]
     Active Substance: RIVAROXABAN
     Indication: EMBOLISM VENOUS
     Dosage: DO NOT TAKE WITH WARFARIN.
     Dates: start: 20190906
  12. LANSOPRAZOLE. [Concomitant]
     Active Substance: LANSOPRAZOLE
     Indication: GASTROOESOPHAGEAL REFLUX DISEASE
     Dates: start: 20191101, end: 20191129

REACTIONS (1)
  - Abdominal pain [Recovered/Resolved]
